FAERS Safety Report 7067936-7 (Version None)
Quarter: 2010Q4

REPORT INFORMATION
  Report Type: 
  Country: None (occurrence: None)
  Receive Date: 20101001
  Receipt Date: 20100921
  Transmission Date: 20110411
  Serious: Yes (Hospitalization)
  Sender: FDA-Public Use
  Company Number: 20100921CINRY1612

PATIENT
  Sex: Female

DRUGS (1)
  1. CINRYZE [Suspect]
     Indication: PRODUCT USED FOR UNKNOWN INDICATION
     Dosage: (5 MG, 2 IN 1 WK)

REACTIONS (1)
  - HOSPITALISATION [None]
